FAERS Safety Report 5788505-2 (Version None)
Quarter: 2008Q2

REPORT INFORMATION
  Report Type: 
  Country: None (occurrence: None)
  Receive Date: 20080626
  Receipt Date: 20080618
  Transmission Date: 20081010
  Serious: Yes (Other)
  Sender: FDA-Public Use
  Company Number: US-BAYER-200824122NA

PATIENT
  Age: 32 Year
  Sex: Female
  Weight: 70 kg

DRUGS (1)
  1. MIRENA [Suspect]
     Indication: CONTRACEPTION
     Route: 015
     Dates: start: 20070117

REACTIONS (13)
  - ABDOMINAL PAIN [None]
  - DEVICE BREAKAGE [None]
  - DISCOMFORT [None]
  - DYSMENORRHOEA [None]
  - GENITAL HAEMORRHAGE [None]
  - IUCD COMPLICATION [None]
  - IUD MIGRATION [None]
  - MENSTRUAL DISORDER [None]
  - NAUSEA [None]
  - PROCEDURAL PAIN [None]
  - UTERINE RUPTURE [None]
  - VAGINAL HAEMORRHAGE [None]
  - WEIGHT DECREASED [None]
